FAERS Safety Report 14109217 (Version 1)
Quarter: 2017Q4

REPORT INFORMATION
  Report Type: Spontaneous
  Country: GB (occurrence: GB)
  Receive Date: 20171019
  Receipt Date: 20171019
  Transmission Date: 20180321
  Serious: Yes (Hospitalization)
  Sender: FDA-Public Use
  Company Number: GB-SA-2017SA197556

PATIENT
  Age: 77 Year
  Sex: Male

DRUGS (9)
  1. SIMVASTATIN. [Concomitant]
     Active Substance: SIMVASTATIN
  2. INDAPAMIDE. [Suspect]
     Active Substance: INDAPAMIDE
     Route: 048
  3. CEFALEXIN [Concomitant]
     Active Substance: CEPHALEXIN
  4. ALFACALCIDOL [Concomitant]
     Active Substance: ALFACALCIDOL
  5. FELODIPINE. [Concomitant]
     Active Substance: FELODIPINE
  6. PIOGLITAZONE. [Concomitant]
     Active Substance: PIOGLITAZONE
  7. SENNA [Concomitant]
     Active Substance: SENNA LEAF\SENNOSIDES\SENNOSIDES A AND B
  8. GLICLAZIDE [Concomitant]
     Active Substance: GLICLAZIDE
  9. CHOLECALCIFEROL [Concomitant]
     Active Substance: CHOLECALCIFEROL
     Route: 065

REACTIONS (2)
  - Hypokalaemia [Recovering/Resolving]
  - Hyponatraemia [Recovering/Resolving]

NARRATIVE: CASE EVENT DATE: 20170919
